FAERS Safety Report 9055249 (Version 1)
Quarter: 2013Q1

REPORT INFORMATION
  Report Type: Spontaneous
  Country: US (occurrence: US)
  Receive Date: 20130206
  Receipt Date: 20130206
  Transmission Date: 20140127
  Serious: Yes (Hospitalization)
  Sender: FDA-Public Use
  Company Number: US-BAYER-2013-014394

PATIENT
  Age: 40 Year
  Sex: Female

DRUGS (3)
  1. OCELLA [Suspect]
  2. SPIRONOLACTONE [Concomitant]
     Indication: POLYCYSTIC OVARIES
     Dosage: 25 MG, QD
  3. KEPPRA [Concomitant]
     Indication: CONVULSION PROPHYLAXIS

REACTIONS (1)
  - Intracranial venous sinus thrombosis [Recovering/Resolving]
